FAERS Safety Report 5006222-3 (Version None)
Quarter: 2006Q1

REPORT INFORMATION
  Report Type: 
  Country: None (occurrence: None)
  Receive Date: 20060327
  Receipt Date: 20060208
  Transmission Date: 20060701
  Serious: No
  Sender: FDA-Public Use
  Company Number: 222003

PATIENT
  Age: 56 Year
  Sex: Male

DRUGS (7)
  1. AVASTIN [Suspect]
     Indication: COLORECTAL CANCER
     Dosage: 5 MG/KG
     Dates: start: 20060206
  2. OXALIPLATIN (OXALIPLATIN) [Suspect]
     Indication: COLORECTAL CANCER
  3. FLUOROURACIL [Suspect]
     Indication: COLORECTAL CANCER
  4. LEUCOVORIN CALCIUM [Suspect]
     Indication: COLORECTAL CANCER
  5. DECADRON (DEXAMETHASONE0 [Concomitant]
  6. ZOFRAN [Concomitant]
  7. KYTRIL [Concomitant]

REACTIONS (3)
  - AMBLYOPIA [None]
  - BLINDNESS TRANSIENT [None]
  - VISION BLURRED [None]
